FAERS Safety Report 16265068 (Version 1)
Quarter: 2019Q2

REPORT INFORMATION
  Report Type: Spontaneous
  Country: US (occurrence: US)
  Receive Date: 20190501
  Receipt Date: 20190501
  Transmission Date: 20190711
  Serious: Yes (Other)
  Sender: FDA-Public Use
  Company Number: None

PATIENT
  Age: 76 Year
  Sex: Male

DRUGS (8)
  1. BUPROPION HCG TAB 300 XL [Concomitant]
     Dates: start: 20190412
  2. DILTIAZEM TABLET 60MG [Concomitant]
     Dates: start: 20190206
  3. LORAZEPAM TABLET 0.5MG [Concomitant]
     Dates: start: 20190206
  4. ENBREL [Suspect]
     Active Substance: ETANERCEPT
     Indication: RHEUMATOID ARTHRITIS
     Dosage: ?          OTHER FREQUENCY:ONCE WEEKLY;?
     Route: 058
     Dates: start: 20170118
  5. QUETIAPINE TABLET 25MG [Concomitant]
     Dates: start: 20190412
  6. METHOTREXATE 2.5MG TABLETS [Concomitant]
     Active Substance: METHOTREXATE
     Dates: start: 20190207
  7. PANTOPRAZOLE TABLET 40MG [Concomitant]
     Dates: start: 20190410
  8. MEMANTINE TABLET 10MG [Concomitant]
     Dates: start: 20190322

REACTIONS (2)
  - Cerebrovascular accident [None]
  - Arthritis [None]

NARRATIVE: CASE EVENT DATE: 20190423
